FAERS Safety Report 19699638 (Version 1)
Quarter: 2021Q3

REPORT INFORMATION
  Report Type: Spontaneous
  Country: CH (occurrence: CH)
  Receive Date: 20210813
  Receipt Date: 20210813
  Transmission Date: 20211014
  Serious: Yes (Other)
  Sender: FDA-Public Use
  Company Number: CH-PFIZER INC-202100997659

PATIENT
  Age: 45 Year
  Sex: Male

DRUGS (16)
  1. VIMPAT [Suspect]
     Active Substance: LACOSAMIDE
     Indication: GENERALISED TONIC-CLONIC SEIZURE
     Dosage: 100 MG, 1X/DAY
     Route: 048
     Dates: start: 2013, end: 20210626
  2. VIMPAT [Suspect]
     Active Substance: LACOSAMIDE
     Dosage: 100 MG, 2X/DAY
     Dates: start: 20210627
  3. LANTUS [Concomitant]
     Active Substance: INSULIN GLARGINE
     Dosage: UNK
     Route: 058
  4. PLAQUENIL [HYDROXYCHLOROQUINE PHOSPHATE] [Concomitant]
     Active Substance: HYDROXYCHLOROQUINE DIPHOSPHATE
     Dosage: 200 MG, 1X/DAY
     Route: 048
     Dates: end: 20210614
  5. AMLODIPIN?MEPHA [Concomitant]
     Active Substance: AMLODIPINE MESYLATE
     Dosage: 5 MG, 1X/DAY
     Route: 048
     Dates: start: 202106
  6. PREDNISON STREULI [Concomitant]
     Active Substance: PREDNISONE
     Dosage: 20 MG, 1X/DAY
     Route: 048
     Dates: end: 202106
  7. IMIPENEM CILASTATIN LABATEC [Suspect]
     Active Substance: CILASTATIN SODIUM\IMIPENEM
     Indication: ABDOMINAL INFECTION
     Dosage: UNK
     Route: 041
     Dates: start: 20210614, end: 20210628
  8. NEXIUM [Suspect]
     Active Substance: ESOMEPRAZOLE MAGNESIUM
     Dosage: 40 MG, 2X/DAY
     Dates: start: 202106
  9. IMUREK [AZATHIOPRINE] [Concomitant]
     Active Substance: AZATHIOPRINE
     Dosage: 50 MG, 1X/DAY
     Route: 048
     Dates: end: 20210614
  10. PASPERTIN E [Concomitant]
     Dosage: 10 MG
     Route: 048
     Dates: start: 202106
  11. PREDNISON STREULI [Concomitant]
     Active Substance: PREDNISONE
     Dosage: 10 MG, 1X/DAY
     Dates: start: 20210706
  12. INSULATARD HM [Concomitant]
     Active Substance: INSULIN HUMAN
     Dosage: 35 IU, DAILY (20IU IN MORNING 15IU IN EVENING)
     Route: 058
     Dates: start: 202106
  13. HEPARIN [Concomitant]
     Active Substance: HEPARIN SODIUM
     Dosage: 40000 IU
     Route: 041
     Dates: start: 202106
  14. DIFLUCAN [Suspect]
     Active Substance: FLUCONAZOLE
     Indication: ABDOMINAL INFECTION
     Dosage: 400 MG, 1X/DAY
     Route: 048
     Dates: start: 20210614
  15. PREDNISON STREULI [Concomitant]
     Active Substance: PREDNISONE
     Dosage: 12.5 MG, 1X DAY
     Route: 048
     Dates: start: 202106, end: 20210705
  16. VENTOLIN [Concomitant]
     Active Substance: ALBUTEROL SULFATE
     Dosage: 1 DF, AS NEEDED
     Route: 055

REACTIONS (3)
  - Hallucination [Not Recovered/Not Resolved]
  - Generalised tonic-clonic seizure [Recovered/Resolved]
  - Nightmare [Not Recovered/Not Resolved]

NARRATIVE: CASE EVENT DATE: 20210626
